FAERS Safety Report 9753258 (Version 1)
Quarter: 2013Q4

REPORT INFORMATION
  Report Type: Spontaneous
  Country: US (occurrence: None)
  Receive Date: 20131211
  Receipt Date: 20131211
  Transmission Date: 20140711
  Serious: Yes (Death)
  Sender: FDA-Public Use
  Company Number: SYM-2013-13686

PATIENT
  Sex: 0

DRUGS (5)
  1. FLUOROURACIL [Suspect]
     Indication: BLADDER CANCER
  2. CISPLATIN (CISPLATIN) (CISPLATIN) [Suspect]
     Indication: BLADDER CANCER
  3. PACLITAXEL (PACLITAXEL) (PACLITAXEL) [Suspect]
     Indication: BLADDER CANCER
  4. THERAPEUTIC RADIOPHARMACEUTICALS (THERAPEUTIC RADIOPHARMACEUTICALS) [Suspect]
     Indication: BLADDER CANCER
     Dosage: 1.5 GY, 2 IN 1 D ?1.6 GY IN THE MORNING AND 1.5 GY IN THE EVENING
  5. GEMCITABINE (GEMCITABINE) (GEMCITABINE) [Suspect]
     Indication: BLADDER CANCER

REACTIONS (2)
  - Febrile neutropenia [None]
  - Infection [None]
